FAERS Safety Report 18270632 (Version 3)
Quarter: 2020Q4

REPORT INFORMATION
  Report Type: Report from Study
  Country: US (occurrence: US)
  Receive Date: 20200915
  Receipt Date: 20201105
  Transmission Date: 20210113
  Serious: Yes (Hospitalization)
  Sender: FDA-Public Use
  Company Number: US-JNJFOC-A-NJ2019-194973

PATIENT
  Age: 37 Year
  Sex: Male
  Weight: 108.96 kg

DRUGS (2)
  1. SILDENAFIL CITRATE. [Concomitant]
     Active Substance: SILDENAFIL CITRATE
  2. OPSUMIT [Suspect]
     Active Substance: MACITENTAN
     Indication: PULMONARY ARTERIAL HYPERTENSION
     Dosage: 10 MG, QD
     Route: 048
     Dates: start: 20190726

REACTIONS (6)
  - Diarrhoea [Unknown]
  - Hospitalisation [Unknown]
  - Renal disorder [Unknown]
  - Gastritis [Unknown]
  - Laboratory test abnormal [Unknown]
  - Drug ineffective [Unknown]
